FAERS Safety Report 5357115-3 (Version None)
Quarter: 2007Q2

REPORT INFORMATION
  Report Type: 
  Country: None (occurrence: None)
  Receive Date: 20070612
  Receipt Date: 20070529
  Transmission Date: 20071010
  Serious: Yes (Disabling)
  Sender: FDA-Public Use
  Company Number: 02100-EUR-07-0077

PATIENT
  Age: 66 Year
  Sex: Male

DRUGS (6)
  1. CILOSTAZOL [Suspect]
     Indication: INTERMITTENT CLAUDICATION
     Dosage: 200 MG, ORAL
     Route: 048
     Dates: start: 20070520, end: 20070524
  2. CILOSTAZOL [Suspect]
     Indication: INTERMITTENT CLAUDICATION
     Dosage: 200 MG, ORAL
     Route: 048
     Dates: start: 20070512
  3. METFORMIN HCL [Concomitant]
  4. ACARBOSE [Concomitant]
  5. ROSIGLITAZONE [Concomitant]
  6. RAMIPRIL [Concomitant]

REACTIONS (2)
  - LACRIMATION INCREASED [None]
  - RHINITIS [None]
